FAERS Safety Report 18280705 (Version 2)
Quarter: 2020Q4

REPORT INFORMATION
  Report Type: Spontaneous
  Country: DE (occurrence: DE)
  Receive Date: 20200918
  Receipt Date: 20201111
  Transmission Date: 20210113
  Serious: Yes (Hospitalization)
  Sender: FDA-Public Use
  Company Number: DE-ASTRAZENECA-2020SF16411

PATIENT
  Age: 89 Year
  Sex: Male

DRUGS (10)
  1. COLECALCIFEROL (VITAMIN D) [Concomitant]
     Dosage: 20.000 IE/6 WOCHEN, 1X, KAPSELN
     Route: 048
  2. METAMIZOL [Concomitant]
     Active Substance: METAMIZOLE SODIUM
     Dosage: 500 MG, 1-1-1-0, TABLETTEN
     Route: 048
  3. QUETIAPIN [Suspect]
     Active Substance: QUETIAPINE
     Dosage: 25 MG, 0-0-1-2
     Route: 048
  4. SPIRONOLACTON [Concomitant]
     Active Substance: SPIRONOLACTONE
     Dosage: 50 MG, 0.5-0-0-0
     Route: 048
  5. RIVAROXABAN [Concomitant]
     Active Substance: RIVAROXABAN
     Dosage: 15 MG, 1-0-0-0, TABLETTEN
     Route: 048
  6. BISOPROLOL [Concomitant]
     Active Substance: BISOPROLOL
     Dosage: 1.25 MG, 1-0-0-0, TABLETTEN
     Route: 048
  7. KALINOR [Concomitant]
     Route: 048
  8. MELPERON [Suspect]
     Active Substance: MELPERONE
     Dosage: 25 MG, 0-0-0-1, TABLETTEN
     Route: 048
  9. PANTOPRAZOL [Concomitant]
     Active Substance: PANTOPRAZOLE SODIUM
     Dosage: 40 MG, 1-0-0-0, TABLETTEN
     Route: 048
  10. TORASEMID [Concomitant]
     Active Substance: TORSEMIDE
     Dosage: 10 MG, 1-0-0-0, TABLETTEN
     Route: 048

REACTIONS (4)
  - Femur fracture [Recovering/Resolving]
  - Musculoskeletal pain [Unknown]
  - Fall [Recovering/Resolving]
  - Arthralgia [Recovering/Resolving]
